FAERS Safety Report 5754487-2 (Version None)
Quarter: 2008Q2

REPORT INFORMATION
  Report Type: 
  Country: None (occurrence: None)
  Receive Date: 20080530
  Receipt Date: 20080519
  Transmission Date: 20081010
  Serious: Yes (Death)
  Sender: FDA-Public Use
  Company Number: MW-BOEHRINGER INGELHEIM GMBH, GERMANY-2008-DE-02904GD

PATIENT

DRUGS (2)
  1. TRIOMUNE [Suspect]
     Indication: HIV INFECTION
     Dosage: BASED ON BODY WEIGHT
     Route: 048
  2. COTRIM [Concomitant]
     Indication: PROPHYLAXIS

REACTIONS (5)
  - ANAL FISTULA [None]
  - DEATH [None]
  - KAPOSI'S SARCOMA [None]
  - RASH [None]
  - SEPSIS [None]
